FAERS Safety Report 9769991 (Version 2)
Quarter: 2013Q4

REPORT INFORMATION
  Report Type: Spontaneous
  Country: US (occurrence: US)
  Receive Date: 20131218
  Receipt Date: 20131218
  Transmission Date: 20140711
  Serious: No
  Sender: FDA-Public Use
  Company Number: US-VERTEX PHARMACEUTICALS INC-AE-2011-000770

PATIENT
  Age: 53 Year
  Sex: Male
  Weight: 75 kg

DRUGS (8)
  1. INCIVEK [Suspect]
     Indication: HEPATITIS C
     Route: 048
     Dates: start: 20110804
  2. PEGASYS [Concomitant]
     Indication: HEPATITIS C
     Route: 058
     Dates: start: 20110804
  3. COPEGUS [Concomitant]
     Indication: HEPATITIS C
     Dates: start: 20110804
  4. PLAVIX [Concomitant]
     Indication: STENT PLACEMENT
     Dates: start: 20050824
  5. LISINOPRIL [Concomitant]
     Indication: HYPERTENSION
     Dates: start: 20050824
  6. TOPROL XL [Concomitant]
     Indication: HYPERTENSION
  7. ASPIRIN [Concomitant]
     Indication: MYOCARDIAL INFARCTION
  8. XANAX [Concomitant]
     Indication: ANXIETY

REACTIONS (4)
  - Dry mouth [Not Recovered/Not Resolved]
  - Faeces discoloured [Not Recovered/Not Resolved]
  - Fatigue [Not Recovered/Not Resolved]
  - Rash erythematous [Recovered/Resolved]
